FAERS Safety Report 10451262 (Version 12)
Quarter: 2019Q3

REPORT INFORMATION
  Report Type: Spontaneous
  Country: US (occurrence: US)
  Receive Date: 20140912
  Receipt Date: 20190819
  Transmission Date: 20191004
  Serious: Yes (Other)
  Sender: FDA-Public Use
  Company Number: US-PFIZER INC-2014253095

PATIENT
  Age: 73 Year
  Sex: Female
  Weight: 77 kg

DRUGS (43)
  1. GAS-X [Concomitant]
     Active Substance: DIMETHICONE
     Indication: FLATULENCE
     Dosage: 125 MG, 3 OR 4 PER DAY AFTER MEALS
  2. FLAXSEED [Concomitant]
     Active Substance: FLAX SEED
     Indication: ROUTINE HEALTH MAINTENANCE
     Dosage: 1 TEA SPOON, 1X/DAY MORNING
     Dates: start: 2013
  3. GLUCOSAMINE SULFATE [Concomitant]
     Active Substance: GLUCOSAMINE SULFATE
     Indication: ROUTINE HEALTH MAINTENANCE
     Dosage: 1000 MG, 1X/DAY
  4. BLINK GEL TEARS [Concomitant]
     Active Substance: POLYETHYLENE GLYCOL 400
     Indication: DRY EYE
     Dosage: 2 GTT (ONE DROP PER EYE), 4X/DAY
     Route: 047
  5. LIPITOR [Concomitant]
     Active Substance: ATORVASTATIN CALCIUM
     Dosage: UNK
  6. LYRICA [Suspect]
     Active Substance: PREGABALIN
     Indication: FIBROMYALGIA
     Dosage: 100 MG, 3X/DAY
     Route: 048
     Dates: start: 2000
  7. FLAXSEED [Concomitant]
     Active Substance: FLAX SEED
     Dosage: 100 MG GROUND, 1 TEA SPOON, MORNING
  8. CARBAMAZEPINE. [Concomitant]
     Active Substance: CARBAMAZEPINE
     Dosage: UNK
  9. LYRICA [Suspect]
     Active Substance: PREGABALIN
     Dosage: 100 MG, 4X/DAY
  10. LOSARTAN. [Concomitant]
     Active Substance: LOSARTAN
     Indication: HYPERTENSION
     Dosage: UNK
     Dates: start: 2013
  11. COUMADIN [Concomitant]
     Active Substance: WARFARIN SODIUM
     Indication: ANTICOAGULANT THERAPY
     Dosage: 2 MG OR 1 MG, ALTERNATE DAY (AT EVENING AT 7:00 PM)
     Dates: start: 2009
  12. SUCRALFATE. [Concomitant]
     Active Substance: SUCRALFATE
     Indication: PROPHYLAXIS AGAINST GASTROINTESTINAL ULCER
     Dosage: 1 MG, 4X/DAY (BEFORE MEALS/NIGHT)
     Dates: start: 2013
  13. SUCRALFATE. [Concomitant]
     Active Substance: SUCRALFATE
     Dosage: 1 MG, 3X/DAY (BEFORE MEALS)
  14. OXYBUTYNIN ER [Concomitant]
     Active Substance: OXYBUTYNIN
     Indication: BLADDER SPASM
     Dosage: 10 MG, 1X/DAY EVENING
  15. PREDNISONE. [Concomitant]
     Active Substance: PREDNISONE
     Dosage: UNK
  16. AMOXILIN [Concomitant]
     Active Substance: AMOXICILLIN
     Dosage: UNK
  17. WARFARIN [Concomitant]
     Active Substance: WARFARIN
     Dosage: UNK
  18. CALCIUM + D [Concomitant]
     Active Substance: CALCIUM\VITAMIN D
     Indication: BONE DISORDER
     Dosage: 600 MG, 2X/DAY AFTER LUNCH
     Dates: start: 2000
  19. PROBIOTICS [Concomitant]
     Active Substance: PROBIOTICS NOS
     Indication: DYSPEPSIA
     Dosage: UNK, 1X/DAY (AFTER LUNCH)
     Dates: start: 2012
  20. PANTOPRAZOLE [Concomitant]
     Active Substance: PANTOPRAZOLE
     Indication: GASTROOESOPHAGEAL REFLUX DISEASE
     Dosage: 40 MG, 1 OR 2 PER DAY AT THE MORNING/EVENING
     Dates: start: 2012
  21. PANTOPRAZOLE [Concomitant]
     Active Substance: PANTOPRAZOLE
     Indication: DYSPEPSIA
  22. VITAMIN B COMPLEX [Concomitant]
     Active Substance: CYANOCOBALAMIN\DEXPANTHENOL\NIACINAMIDE\PYRIDOXINE HYDROCHLORIDE\RIBOFLAVIN 5^-PHOSPHATE SODIUM\THIAMINE HYDROCHLORIDE\VITAMIN B COMPLEX
     Indication: VITAMIN SUPPLEMENTATION
     Dosage: 1 DF, 1X/DAY (AFTER LUNCH)
     Dates: start: 2014
  23. EQUALACTIN [Concomitant]
     Indication: IRRITABLE BOWEL SYNDROME
     Dosage: 2 DF, 1X/DAY MORNING
     Dates: start: 2013
  24. BACTRIM [Concomitant]
     Active Substance: SULFAMETHOXAZOLE\TRIMETHOPRIM
     Dosage: UNK
  25. SYMBICORT [Concomitant]
     Active Substance: BUDESONIDE\FORMOTEROL FUMARATE DIHYDRATE
     Indication: ASTHMA
     Dosage: BUDESONIDE 160/FORMOTEROL FUMARATE 4.5 AT 2 PUMPS PER DAY MORNING/NIGHT
  26. LYRICA [Suspect]
     Active Substance: PREGABALIN
     Indication: NEUROPATHY PERIPHERAL
     Dosage: 100 MG, 3X/DAY (MORNING/NOON/NIGHT)
     Route: 048
  27. TIZANIDINE. [Concomitant]
     Active Substance: TIZANIDINE
     Indication: MUSCLE SPASMS
     Dosage: 4 MG, 2X/DAY (AS NEEDED)
     Dates: start: 2013
  28. GLUCOSAMINE SULFATE [Concomitant]
     Active Substance: GLUCOSAMINE SULFATE
     Dosage: 2000 MG, 1X/DAY (AFTER LUNCH)
  29. DOXICYCLINE [Concomitant]
     Dosage: UNK
  30. CYCLOBENZAPRINE. [Concomitant]
     Active Substance: CYCLOBENZAPRINE
     Indication: MUSCLE SPASMS
     Dosage: 10 MG, 1 OR 2 PER DAY AS NEEDED
  31. NYSTATIN. [Concomitant]
     Active Substance: NYSTATIN
     Indication: STOMATITIS
     Dosage: 100000 U SUS AT 2 TEASPOONS FULL
  32. HYOSCYAMINE. [Concomitant]
     Active Substance: HYOSCYAMINE
     Indication: GASTROINTESTINAL PAIN
     Dosage: 0.125 MG, 3X/DAY AS NEEDED
     Dates: start: 2015
  33. TYLENOL [Concomitant]
     Active Substance: ACETAMINOPHEN
     Indication: PAIN
  34. PROBIOTICS [Concomitant]
     Active Substance: PROBIOTICS NOS
     Dosage: 1 DF, 1X/DAY
  35. LEVAQUIN [Concomitant]
     Active Substance: LEVOFLOXACIN
     Dosage: UNK
  36. RESTASIS [Concomitant]
     Active Substance: CYCLOSPORINE
     Indication: DRY EYE
     Dosage: 1 DROP EACH EYE AT THE MORNING/EVENING
     Route: 047
     Dates: start: 2000
  37. FOLIC ACID. [Concomitant]
     Active Substance: FOLIC ACID
     Indication: ROUTINE HEALTH MAINTENANCE
     Dosage: 400 MG, 1X/DAY (AFTER LUNCH)
     Dates: start: 2012
  38. DICYCLOMINE [Concomitant]
     Active Substance: DICYCLOMINE HYDROCHLORIDE
     Indication: GASTROINTESTINAL PAIN
     Dosage: 20 MG, EVERY 6 HOURS AS NEEDED
  39. BYSTOLIC [Concomitant]
     Active Substance: NEBIVOLOL HYDROCHLORIDE
     Indication: HYPERTENSION
     Dosage: 5 MG, 1X/DAY (MORNING)
     Dates: start: 2013
  40. ATORVASTATIN [Concomitant]
     Active Substance: ATORVASTATIN
     Indication: BLOOD CHOLESTEROL ABNORMAL
     Dosage: 10 MG, 1X/DAY (EVENING)
     Dates: start: 2010
  41. SYSTANE ULTRA [Concomitant]
     Active Substance: POLYETHYLENE GLYCOL 400\PROPYLENE GLYCOL
     Indication: DRY EYE
     Dosage: 1 DROP EACH EYE, 4X/DAY
     Route: 047
     Dates: start: 2000
  42. TYLENOL [Concomitant]
     Active Substance: ACETAMINOPHEN
     Indication: HEADACHE
     Dosage: 500 MG, 4 OR 6 HOURS AS NEEDED
     Dates: start: 2000
  43. TYLENOL [Concomitant]
     Active Substance: ACETAMINOPHEN
     Indication: BACK PAIN

REACTIONS (2)
  - Deafness [Unknown]
  - Rash [Unknown]
